FAERS Safety Report 7553674-0 (Version None)
Quarter: 2011Q2

REPORT INFORMATION
  Report Type: 
  Country: None (occurrence: None)
  Receive Date: 20110617
  Receipt Date: 20110607
  Transmission Date: 20111010
  Serious: Yes (Hospitalization, Other)
  Sender: FDA-Public Use
  Company Number: US-JNJFOC-20110509412

PATIENT
  Sex: Female
  Weight: 74.07 kg

DRUGS (10)
  1. DAPTOMYCIN [Concomitant]
     Indication: PRODUCT USED FOR UNKNOWN INDICATION
     Route: 042
     Dates: start: 20110518
  2. DORIBAX [Suspect]
     Indication: SEPSIS
     Route: 041
     Dates: start: 20110517
  3. DORIBAX [Suspect]
     Route: 041
     Dates: start: 20110518
  4. EPOETIN [Concomitant]
     Indication: PRODUCT USED FOR UNKNOWN INDICATION
     Route: 065
     Dates: start: 20110514
  5. PANTOPRAZOLE [Concomitant]
     Indication: PRODUCT USED FOR UNKNOWN INDICATION
     Route: 048
     Dates: start: 20110514
  6. DORIBAX [Suspect]
     Route: 041
     Dates: start: 20110516
  7. CYCLOBENZAPRINE [Concomitant]
     Indication: PRODUCT USED FOR UNKNOWN INDICATION
     Route: 048
     Dates: start: 20110514
  8. ENOXAPARIN [Concomitant]
     Indication: PRODUCT USED FOR UNKNOWN INDICATION
     Dosage: 30 MG PER 0.3ML/INJECTION
     Route: 065
     Dates: start: 20110514
  9. CALCITRIOL [Concomitant]
     Indication: PRODUCT USED FOR UNKNOWN INDICATION
     Dosage: 5 MCG PER ML
     Route: 042
     Dates: start: 20110514
  10. ACETAMINOPHEN [Concomitant]
     Indication: PRODUCT USED FOR UNKNOWN INDICATION
     Route: 048
     Dates: start: 20110514

REACTIONS (2)
  - BLOOD CREATININE INCREASED [None]
  - PRODUCT QUALITY ISSUE [None]
